FAERS Safety Report 7190749-2 (Version None)
Quarter: 2010Q4

REPORT INFORMATION
  Report Type: 
  Country: None (occurrence: None)
  Receive Date: 20101213
  Receipt Date: 20101130
  Transmission Date: 20110411
  Serious: No
  Sender: FDA-Public Use
  Company Number: 022161

PATIENT
  Sex: Male
  Weight: 131.9967 kg

DRUGS (4)
  1. LACOSAMIDE [Suspect]
     Indication: CONVULSION
     Dosage: 300 MG BID ORAL
     Route: 048
     Dates: start: 20080530
  2. LACOSAMIDE [Suspect]
     Indication: EPILEPSY
     Dosage: 300 MG BID ORAL
     Route: 048
     Dates: start: 20080530
  3. LACOSAMIDE [Suspect]
  4. TOPAMAX [Concomitant]

REACTIONS (1)
  - SYNCOPE [None]
